FAERS Safety Report 4514900-5 (Version None)
Quarter: 2004Q4

REPORT INFORMATION
  Report Type: 
  Country: None (occurrence: None)
  Receive Date: 20041129
  Receipt Date: 20041129
  Transmission Date: 20050328
  Serious: Yes (Hospitalization)
  Sender: FDA-Public Use
  Company Number: None

PATIENT
  Sex: Male
  Weight: 131 kg

DRUGS (2)
  1. KETEK [Suspect]
     Indication: SINUSITIS
     Dosage: 800MG  DAILY  ORAL
     Route: 048
     Dates: start: 20041106, end: 20041109
  2. ZOCOR [Suspect]
     Indication: HYPERLIPIDAEMIA
     Dosage: 40MG  DAILY ORAL
     Route: 048

REACTIONS (2)
  - RHABDOMYOLYSIS [None]
  - SINUSITIS [None]
